FAERS Safety Report 8989254 (Version 7)
Quarter: 2013Q2

REPORT INFORMATION
  Report Type: Spontaneous
  Country: US (occurrence: US)
  Receive Date: 20121227
  Receipt Date: 20130607
  Transmission Date: 20140414
  Serious: No
  Sender: FDA-Public Use
  Company Number: US-009507513-1212USA009877

PATIENT
  Age: 21 Year
  Sex: Female
  Weight: 53.97 kg

DRUGS (2)
  1. IMPLANON [Suspect]
     Dosage: 68 MG, 1 DF, INSERTED IN LEFT ARM
     Route: 059
     Dates: start: 20120629
  2. VITAMINS (UNSPECIFIED) [Concomitant]

REACTIONS (4)
  - Unintended pregnancy [Unknown]
  - Device breakage [Unknown]
  - Device expulsion [Unknown]
  - Medical device complication [Unknown]
